FAERS Safety Report 20811832 (Version 1)
Quarter: 2022Q2

REPORT INFORMATION
  Report Type: Spontaneous
  Country: US (occurrence: US)
  Receive Date: 20220511
  Receipt Date: 20220511
  Transmission Date: 20220721
  Serious: Yes (Hospitalization, Other)
  Sender: FDA-Public Use
  Company Number: ENDG22-02680

PATIENT
  Sex: Female

DRUGS (10)
  1. PREDNISONE [Suspect]
     Active Substance: PREDNISONE
     Indication: Rheumatoid arthritis
     Dosage: 2 DF, DAILY
     Route: 048
     Dates: start: 1993, end: 20151115
  2. PREDNISONE [Suspect]
     Active Substance: PREDNISONE
     Dosage: 1 DF, DAILY
     Route: 048
     Dates: start: 20151116, end: 20151119
  3. PREDNISONE [Suspect]
     Active Substance: PREDNISONE
     Dosage: 2 DF, DAILY
     Route: 065
     Dates: start: 20151120
  4. XELJANZ [Suspect]
     Active Substance: TOFACITINIB CITRATE
     Indication: Rheumatoid arthritis
     Dosage: 10 MG, DAILY
     Route: 048
     Dates: start: 2014
  5. XELJANZ [Suspect]
     Active Substance: TOFACITINIB CITRATE
     Indication: Osteoporosis
  6. GLIMEPIRIDE [Suspect]
     Active Substance: GLIMEPIRIDE
     Indication: Diabetes mellitus
     Dosage: 2 MG, DAILY
     Route: 048
     Dates: start: 2014
  7. GLIMEPIRIDE [Suspect]
     Active Substance: GLIMEPIRIDE
     Dosage: UNK UNKNOWN, UNKNOWN
     Route: 048
     Dates: start: 20151208
  8. GLIMEPIRIDE [Suspect]
     Active Substance: GLIMEPIRIDE
     Dosage: 1 MG, DAILY
     Route: 048
     Dates: end: 2015
  9. GLIMEPIRIDE [Suspect]
     Active Substance: GLIMEPIRIDE
     Dosage: 1 MG, DAILY
     Route: 048
     Dates: start: 20160304
  10. JANUVIA [Suspect]
     Active Substance: SITAGLIPTIN PHOSPHATE
     Indication: Diabetes mellitus
     Dosage: 300 MG, DAILY
     Route: 048

REACTIONS (7)
  - Blood insulin increased [Not Recovered/Not Resolved]
  - Pneumonia [Recovered/Resolved]
  - Dyspnoea [Recovered/Resolved]
  - Chest pain [Recovered/Resolved]
  - Inflammation [Recovered/Resolved]
  - Diverticulitis [Recovered/Resolved]
  - Transfusion [Recovered/Resolved]

NARRATIVE: CASE EVENT DATE: 20150302
